FAERS Safety Report 12887369 (Version 1)
Quarter: 2016Q4

REPORT INFORMATION
  Report Type: Spontaneous
  Country: FR (occurrence: FR)
  Receive Date: 20161026
  Receipt Date: 20161026
  Transmission Date: 20170207
  Serious: No
  Sender: FDA-Public Use
  Company Number: FR-JAZZ-2016-FR-017968

PATIENT

DRUGS (7)
  1. BUSULFAN. [Concomitant]
     Active Substance: BUSULFAN
     Indication: METASTATIC NEOPLASM
  2. THIOTEPA. [Concomitant]
     Active Substance: THIOTEPA
     Indication: METASTATIC NEOPLASM
  3. MELPHALAN [Concomitant]
     Active Substance: MELPHALAN
     Indication: NEUROBLASTOMA
  4. BUSULFAN. [Concomitant]
     Active Substance: BUSULFAN
     Indication: NEUROBLASTOMA
  5. THIOTEPA. [Concomitant]
     Active Substance: THIOTEPA
     Indication: NEUROBLASTOMA
  6. DEFITELIO [Suspect]
     Active Substance: DEFIBROTIDE SODIUM
     Indication: PROPHYLAXIS
     Dosage: UNK
     Dates: start: 20160907
  7. MELPHALAN [Concomitant]
     Active Substance: MELPHALAN
     Indication: METASTATIC NEOPLASM

REACTIONS (1)
  - Off label use [Unknown]
